FAERS Safety Report 9917958 (Version 1)
Quarter: 2014Q1

REPORT INFORMATION
  Report Type: Report from Study
  Country: US (occurrence: US)
  Receive Date: 20140222
  Receipt Date: 20140222
  Transmission Date: 20141002
  Serious: Yes (Hospitalization)
  Sender: FDA-Public Use
  Company Number: US-ROCHE-1354345

PATIENT
  Age: 84 Year
  Sex: Female

DRUGS (2)
  1. LUCENTIS [Suspect]
     Indication: MACULAR DEGENERATION
     Dosage: RIGHT EYE
     Route: 065
  2. LUCENTIS [Suspect]
     Indication: VISUAL IMPAIRMENT

REACTIONS (6)
  - Fall [Unknown]
  - Upper limb fracture [Unknown]
  - Upper limb fracture [Unknown]
  - Malaise [Unknown]
  - Asthenia [Unknown]
  - Visual impairment [Unknown]
